FAERS Safety Report 9406501 (Version 1)
Quarter: 2013Q3

REPORT INFORMATION
  Report Type: Spontaneous
  Country: SE (occurrence: SE)
  Receive Date: 20130718
  Receipt Date: 20130718
  Transmission Date: 20140515
  Serious: Yes (Other)
  Sender: FDA-Public Use
  Company Number: SE-RANBAXY-2013R1-71282

PATIENT
  Age: 76 Year
  Sex: Male

DRUGS (1)
  1. METFORMIN [Suspect]
     Indication: PRODUCT USED FOR UNKNOWN INDICATION
     Route: 065

REACTIONS (5)
  - Decreased appetite [Unknown]
  - Nausea [Unknown]
  - Diarrhoea [Unknown]
  - Dehydration [Unknown]
  - Blood creatinine increased [Unknown]
